FAERS Safety Report 8918703 (Version 1)
Quarter: 2012Q4

REPORT INFORMATION
  Report Type: 
  Country: US (occurrence: US)
  Receive Date: 20121120
  Receipt Date: 20121120
  Transmission Date: 20130627
  Serious: No
  Sender: FDA-Public Use
  Company Number: US-ASTRAZENECA-2012SE20069

PATIENT
  Age: 51 Year
  Sex: Female

DRUGS (13)
  1. NEXIUM [Suspect]
     Route: 048
     Dates: start: 20120309
  2. NEXIUM [Suspect]
     Route: 048
  3. LORATADINE [Concomitant]
  4. GLIPIZIDE [Concomitant]
  5. PERCOCET [Concomitant]
  6. METFORMIN HCL [Concomitant]
  7. LITHIUM CARBONATE [Concomitant]
  8. PROZAC [Concomitant]
  9. DIOVAN HCT [Concomitant]
  10. SAVELLA [Concomitant]
  11. PRENATAL PLUS IRON [Concomitant]
  12. FLUOXETINE HCL [Concomitant]
  13. ASPIRIN CHILDRENS [Concomitant]

REACTIONS (2)
  - Essential hypertension [Unknown]
  - Off label use [Unknown]
